FAERS Safety Report 14888722 (Version 3)
Quarter: 2018Q3

REPORT INFORMATION
  Report Type: Spontaneous
  Country: US (occurrence: US)
  Receive Date: 20180514
  Receipt Date: 20180926
  Transmission Date: 20181010
  Serious: No
  Sender: FDA-Public Use
  Company Number: US-ASTRAZENECA-2018SE52065

PATIENT
  Sex: Male

DRUGS (15)
  1. TAGRISSO [Suspect]
     Active Substance: OSIMERTINIB
     Indication: LUNG NEOPLASM MALIGNANT
     Route: 048
     Dates: start: 20180412
  2. FLAX OIL [Concomitant]
  3. TAMSULOSIN HYDROCHLORIDE. [Concomitant]
     Active Substance: TAMSULOSIN HYDROCHLORIDE
  4. TYLENOL [Concomitant]
     Active Substance: ACETAMINOPHEN
     Dosage: 600+D3 600?800 MG?UNIT
  5. MULTIVITAMIN [Concomitant]
     Active Substance: VITAMINS
  6. XGEVA [Concomitant]
     Active Substance: DENOSUMAB
     Dosage: 600+D3 600?800 MG?UNIT
  7. FISH OIL [Concomitant]
     Active Substance: FISH OIL
  8. DEXAMETHASON [Concomitant]
     Active Substance: DEXAMETHASONE
  9. SODIUM CHLORIDE. [Concomitant]
     Active Substance: SODIUM CHLORIDE
  10. TAGRISSO [Suspect]
     Active Substance: OSIMERTINIB
     Indication: LUNG NEOPLASM MALIGNANT
     Route: 048
     Dates: start: 20180413
  11. VITAMIN C [Concomitant]
     Active Substance: ASCORBIC ACID
  12. CALCIUM [Concomitant]
     Active Substance: CALCIUM
     Dosage: 600+D3 600?800 MG?UNIT
  13. BORAGE OIL [Concomitant]
     Active Substance: BORAGE OIL
  14. ADVIL [Concomitant]
     Active Substance: IBUPROFEN
  15. VALACICLOVIR HYDROCHLORIDE [Concomitant]
     Active Substance: VALACYCLOVIR HYDROCHLORIDE

REACTIONS (10)
  - Pleural effusion [Recovering/Resolving]
  - Weight decreased [Recovering/Resolving]
  - Pain in jaw [Unknown]
  - Pneumonia [Recovering/Resolving]
  - Chest discomfort [Recovering/Resolving]
  - Fatigue [Recovering/Resolving]
  - Diarrhoea [Recovering/Resolving]
  - Dry skin [Recovering/Resolving]
  - Dyspnoea [Recovering/Resolving]
  - Dry eye [Recovering/Resolving]
